FAERS Safety Report 9563752 (Version 1)
Quarter: 2013Q1

REPORT INFORMATION
  Report Type: Spontaneous
  Country: US (occurrence: None)
  Receive Date: 20121212
  Receipt Date: 20121212
  Transmission Date: 20140127
  Serious: No
  Sender: FDA-Public Use
  Company Number: 1209USA001935

PATIENT
  Age: 56 Year
  Sex: Male

DRUGS (3)
  1. VICTRELIS [Suspect]
     Indication: HEPATITIS C
     Route: 048
     Dates: end: 201202
  2. REBETOL [Suspect]
     Dates: end: 201202
  3. VALIUM (DIAZEPAM) [Concomitant]

REACTIONS (3)
  - Malaise [None]
  - Pain [None]
  - Abdominal distension [None]
